FAERS Safety Report 6595677-9 (Version None)
Quarter: 2010Q1

REPORT INFORMATION
  Report Type: 
  Country: None (occurrence: None)
  Receive Date: 20100223
  Receipt Date: 20100105
  Transmission Date: 20100710
  Serious: Yes (Death)
  Sender: FDA-Public Use
  Company Number: US-TYCO HEALTHCARE/MALLINCKRODT-T201000394

PATIENT
  Age: 54 Year
  Sex: Male

DRUGS (1)
  1. METHADOSE [Suspect]
     Route: 048

REACTIONS (1)
  - COMPLETED SUICIDE [None]
